FAERS Safety Report 5975951-7 (Version None)
Quarter: 2008Q4

REPORT INFORMATION
  Report Type: 
  Country: None (occurrence: None)
  Receive Date: 20081124
  Receipt Date: 20080108
  Transmission Date: 20090506
  Serious: Yes (Other)
  Sender: FDA-Public Use
  Company Number: 44113

PATIENT
  Age: 91 Year
  Sex: Female
  Weight: 48 kg

DRUGS (1)
  1. AMIODARONE HCL [Suspect]
     Indication: ATRIAL FIBRILLATION
     Dosage: 1.8MG/ML AT 17 ML/HR IV
     Route: 042
     Dates: start: 20080108

REACTIONS (1)
  - EXTRAVASATION [None]
